FAERS Safety Report 10757327 (Version 1)
Quarter: 2015Q1

REPORT INFORMATION
  Report Type: Spontaneous
  Country: CN (occurrence: None)
  Receive Date: 20150130
  Receipt Date: 20150130
  Transmission Date: 20150721
  Serious: Yes (Other)
  Sender: FDA-Public Use
  Company Number: CN2015010531

PATIENT
  Age: 58 Year
  Sex: Female
  Weight: 69 kg

DRUGS (3)
  1. EFAVIRENZ (EFAVIRENZ) [Suspect]
     Active Substance: EFAVIRENZ
     Indication: ACQUIRED IMMUNODEFICIENCY SYNDROME
     Route: 048
     Dates: start: 20140305, end: 20140911
  2. HEPTODIN [Suspect]
     Active Substance: LAMIVUDINE
     Indication: ACQUIRED IMMUNODEFICIENCY SYNDROME
     Route: 048
     Dates: start: 20140305, end: 20140811
  3. VIREAD [Suspect]
     Active Substance: TENOFOVIR DISOPROXIL FUMARATE
     Indication: ACQUIRED IMMUNODEFICIENCY SYNDROME
     Route: 048
     Dates: start: 20140305, end: 20140911

REACTIONS (1)
  - Hepatocellular injury [None]

NARRATIVE: CASE EVENT DATE: 20140901
